FAERS Safety Report 7208832-1 (Version None)
Quarter: 2010Q4

REPORT INFORMATION
  Report Type: 
  Country: None (occurrence: None)
  Receive Date: 20101222
  Receipt Date: 20101207
  Transmission Date: 20110411
  Serious: Yes (Other)
  Sender: FDA-Public Use
  Company Number: GER/ITL/10/0016888

PATIENT
  Age: 45 Year
  Sex: Female

DRUGS (6)
  1. CITALOPRAM (CITALOPRAM) [Suspect]
     Indication: PANIC ATTACK
     Dosage: 30 MG, 1 IN 1 D
  2. SERTRALINE HYDROCHLORIDE [Suspect]
     Indication: PRODUCT USED FOR UNKNOWN INDICATION
     Dosage: 100 MG, 1 IN 1 D
  3. LORMETAZEPAM (LORMETAZEPAM) [Suspect]
     Indication: PANIC ATTACK
     Dosage: 3 MG, 1 IN 1 D ; 25 MG 1 D ; 8 MG 1 D ; 4 MG, 1 D
  4. FLUVOXAMINE MALEATE [Suspect]
     Indication: PRODUCT USED FOR UNKNOWN INDICATION
     Dosage: 150 MG, 1 IN 1 D
  5. VALPROIC ACID [Concomitant]
  6. LITHIUM CARBONATE [Concomitant]

REACTIONS (6)
  - ANXIETY [None]
  - DRUG ABUSE [None]
  - IRRITABILITY [None]
  - PANIC ATTACK [None]
  - SLEEP DISORDER [None]
  - SOCIAL AVOIDANT BEHAVIOUR [None]
